FAERS Safety Report 8410131-7 (Version None)
Quarter: 2012Q2

REPORT INFORMATION
  Report Type: 
  Country: None (occurrence: None)
  Receive Date: 20120605
  Receipt Date: 20120530
  Transmission Date: 20120825
  Serious: Yes (Other)
  Sender: FDA-Public Use
  Company Number: US-PFIZER INC-2012117211

PATIENT
  Sex: Male
  Weight: 104 kg

DRUGS (24)
  1. HYDRALAZINE [Concomitant]
     Dosage: 50 MG, 1X/DAY
  2. NOVOLIN R [Concomitant]
     Dosage: 30 IU, 3X/DAY
  3. VITAMIN B COMPLEX CAP [Concomitant]
     Dosage: UNK
  4. ENALAPRIL [Concomitant]
     Dosage: 20 MG, 2X/DAY
  5. INSULIN DETEMIR [Concomitant]
     Dosage: 55 IU, 1X/DAY
  6. POTASSIUM [Concomitant]
     Dosage: 20 MG, AS NEEDED
  7. FUROSEMIDE [Concomitant]
     Dosage: 80 MG, 3X/DAY
  8. VITAMIN D [Concomitant]
     Dosage: 400 IU, DAILY
  9. JANUVIA [Concomitant]
     Dosage: 50 MG, DAILY
  10. SPIRONOLACTONE [Concomitant]
     Dosage: 25 MG, DAILY
  11. ISOSORBIDE [Concomitant]
     Dosage: 30 MG, 2X/DAY
  12. LIPITOR [Concomitant]
     Dosage: 20 MG, DAILY
  13. NOVOLIN R [Concomitant]
     Dosage: 5/10 MG, 2X/DAY
  14. LOVAZA [Concomitant]
     Dosage: 1000 MG, 2X/DAY
  15. ACETYLSALICYLIC ACID [Concomitant]
     Dosage: 325 MG, DAILY
  16. HUMULIN N [Concomitant]
     Dosage: UNK
  17. METOPROLOL [Concomitant]
     Dosage: 100 MG, 2X/DAY
  18. PLAVIX [Concomitant]
     Dosage: 75 MG, DAILY
  19. LYRICA [Suspect]
     Indication: NEUROPATHY PERIPHERAL
     Dosage: 100 MG, 3X/DAY
     Dates: start: 20040101, end: 20120501
  20. GLYBURIDE [Concomitant]
     Dosage: 5 MG, DAILY
  21. HYDRALAZINE [Concomitant]
     Dosage: 25 MG, 2X/DAY
  22. LIPITOR [Concomitant]
     Indication: BLOOD CHOLESTEROL ABNORMAL
     Dosage: 40 MG, 1X/DAY
  23. METHIMAZOLE [Concomitant]
     Dosage: 10 MG, 2X/DAY
  24. LANTUS [Concomitant]
     Dosage: 45 IU,DAILY

REACTIONS (7)
  - HYPOAESTHESIA [None]
  - RESTLESS LEGS SYNDROME [None]
  - PAIN IN EXTREMITY [None]
  - PARAESTHESIA [None]
  - MUSCLE SPASMS [None]
  - FEELING ABNORMAL [None]
  - INSOMNIA [None]
